FAERS Safety Report 22156555 (Version 3)
Quarter: 2024Q3

REPORT INFORMATION
  Report Type: Spontaneous
  Country: JP (occurrence: JP)
  Receive Date: 20230330
  Receipt Date: 20240924
  Transmission Date: 20241017
  Serious: Yes (Hospitalization, Other)
  Sender: LUNDBECK
  Company Number: JP-SA-2022SA188968

PATIENT

DRUGS (24)
  1. SABRIL [Suspect]
     Active Substance: VIGABATRIN
     Indication: Infantile spasms
     Dosage: 125 MG, BID
     Route: 048
     Dates: start: 20210205, end: 20210427
  2. SABRIL [Suspect]
     Active Substance: VIGABATRIN
     Dosage: 300 MG, BID
     Route: 048
     Dates: start: 20230306, end: 20230321
  3. SABRIL [Suspect]
     Active Substance: VIGABATRIN
     Dosage: 250 MG, BID
     Route: 048
     Dates: start: 20230322, end: 2023
  4. SABRIL [Suspect]
     Active Substance: VIGABATRIN
     Dosage: 160 MG, BID
     Route: 048
     Dates: start: 20210428, end: 20220111
  5. SABRIL [Suspect]
     Active Substance: VIGABATRIN
     Dosage: 185 MG, BID
     Route: 048
     Dates: start: 20220112, end: 20220322
  6. SABRIL [Suspect]
     Active Substance: VIGABATRIN
     Dosage: 210 MG, BID
     Route: 048
     Dates: start: 20220323, end: 20220426
  7. SABRIL [Suspect]
     Active Substance: VIGABATRIN
     Dosage: 235 MG, BID
     Route: 048
     Dates: start: 20220427, end: 20220522
  8. SABRIL [Suspect]
     Active Substance: VIGABATRIN
     Dosage: 260 MG, BID
     Route: 048
     Dates: start: 20220523, end: 20220612
  9. SABRIL [Suspect]
     Active Substance: VIGABATRIN
     Dosage: 285 MG, BID
     Route: 048
     Dates: start: 20220613, end: 20220628
  10. SABRIL [Suspect]
     Active Substance: VIGABATRIN
     Dosage: 310 MG, BID
     Route: 048
     Dates: start: 20220629, end: 20220830
  11. SABRIL [Suspect]
     Active Substance: VIGABATRIN
     Dosage: 350 MG, BID
     Route: 048
     Dates: start: 20220831, end: 20230305
  12. LEVETIRACETAM [Concomitant]
     Active Substance: LEVETIRACETAM
     Indication: Partial seizures
     Dosage: DAILY DOSE: 100 MG
     Route: 048
     Dates: start: 20210127, end: 20210131
  13. LEVETIRACETAM [Concomitant]
     Active Substance: LEVETIRACETAM
     Indication: Partial seizures
     Dosage: DAILY DOSE: 150 MG
     Route: 048
     Dates: start: 20210201, end: 20210314
  14. LEVETIRACETAM [Concomitant]
     Active Substance: LEVETIRACETAM
     Dosage: DAILY DOSE: 200 MG
     Route: 048
     Dates: start: 20210315, end: 20210406
  15. LEVETIRACETAM [Concomitant]
     Active Substance: LEVETIRACETAM
     Dosage: DAILY DOSE: 250 MG
     Route: 048
     Dates: start: 20210407, end: 20220208
  16. LEVETIRACETAM [Concomitant]
     Active Substance: LEVETIRACETAM
     Dosage: DAILY DOSE: 300 MG
     Route: 048
     Dates: start: 20220209, end: 20230110
  17. LEVETIRACETAM [Concomitant]
     Active Substance: LEVETIRACETAM
     Dosage: DAILY DOSE: 350 MG
     Route: 048
     Dates: start: 20230111, end: 20230115
  18. LEVETIRACETAM [Concomitant]
     Active Substance: LEVETIRACETAM
     Dosage: DAILY DOSE: 380 MG
     Route: 048
     Dates: start: 20230116
  19. PHENOBARBITAL [Concomitant]
     Active Substance: PHENOBARBITAL
     Indication: Partial seizures
     Dosage: DAILY DOSE: 60 MG
     Route: 048
     Dates: start: 20210127, end: 20210203
  20. PHENOBARBITAL [Concomitant]
     Active Substance: PHENOBARBITAL
     Dosage: DAILY DOSE: 45 MG
     Route: 048
     Dates: start: 20210204, end: 20210207
  21. PHENOBARBITAL [Concomitant]
     Active Substance: PHENOBARBITAL
     Dosage: DAILY DOSE: 30 MG
     Route: 048
     Dates: start: 20210208, end: 20210223
  22. PHENOBARBITAL [Concomitant]
     Active Substance: PHENOBARBITAL
     Dosage: DAILY DOSE: 20 MG
     Route: 048
     Dates: start: 20210224, end: 20210308
  23. PHENOBARBITAL [Concomitant]
     Active Substance: PHENOBARBITAL
     Dosage: DAILY DOSE: 30 MG
     Route: 048
     Dates: start: 20210309, end: 20210311
  24. PHENOBARBITAL [Concomitant]
     Active Substance: PHENOBARBITAL
     Dosage: DAILY DOSE: 40 MG
     Route: 048
     Dates: start: 20210312

REACTIONS (5)
  - Partial seizures [Recovering/Resolving]
  - Condition aggravated [Recovering/Resolving]
  - Magnetic resonance imaging head abnormal [Unknown]
  - Partial seizures [Not Recovered/Not Resolved]
  - Condition aggravated [Not Recovered/Not Resolved]

NARRATIVE: CASE EVENT DATE: 20210308
